FAERS Safety Report 8925339 (Version 1)
Quarter: 2012Q4

REPORT INFORMATION
  Report Type: 
  Country: DE (occurrence: DE)
  Receive Date: 20121126
  Receipt Date: 20121126
  Transmission Date: 20130627
  Serious: Yes (Hospitalization)
  Sender: FDA-Public Use
  Company Number: DE-PFIZER INC-2012292639

PATIENT
  Age: 68 Year
  Sex: Male
  Weight: 89 kg

DRUGS (13)
  1. GENOTROPIN [Suspect]
     Dosage: 0.07 mg, 1x/day,7 injections/week
     Route: 058
     Dates: start: 20021127
  2. HYDROCORTISONE [Concomitant]
     Indication: ACTH DECREASED
     Dosage: UNK
     Dates: start: 19851215
  3. BROMOCRIPTINE [Concomitant]
     Indication: ENDOCRINE DISORDER
     Dosage: UNK
     Dates: start: 19851215
  4. VINPOCETINE [Concomitant]
     Indication: SYMBOLIC DYSFUNCTION
     Dosage: UNK
     Dates: start: 19851215
  5. TESTOSTERONE [Concomitant]
     Indication: LUTEINIZING HORMONE DEFICIENCY
     Dosage: UNK
     Dates: start: 20001115
  6. TESTOSTERONE [Concomitant]
     Indication: FOLLICLE-STIMULATING HORMONE DEFICIENCY
  7. TESTOSTERONE [Concomitant]
     Indication: TESTICULAR HYPOGONADISM
  8. CELEBREX [Concomitant]
     Indication: OSTEOARTHROSIS
     Dosage: UNK
     Dates: start: 20010515
  9. MELOXICAM [Concomitant]
     Indication: OSTEOARTHROSIS
     Dosage: UNK
     Dates: start: 20011119
  10. IBUPROFEN [Concomitant]
     Indication: OSTEOARTHROSIS
     Dosage: UNK
     Dates: start: 20020715
  11. ROXITHROMYCIN [Concomitant]
     Indication: INFECTIOUS AND PARASITIC DISEASES, UNSPECIFIED
     Dosage: UNK
     Dates: start: 20020114
  12. LEVOTHYROXINE [Concomitant]
     Indication: TSH DECREASED
     Dosage: UNK
     Dates: start: 19851215
  13. LEVOTHYROXINE [Concomitant]
     Indication: PRIMARY HYPOTHYROIDISM

REACTIONS (1)
  - Metabolic disorder [Unknown]
